FAERS Safety Report 13937375 (Version 2)
Quarter: 2017Q4

REPORT INFORMATION
  Report Type: Report from Study
  Country: US (occurrence: US)
  Receive Date: 20170905
  Receipt Date: 20171215
  Transmission Date: 20180320
  Serious: No
  Sender: FDA-Public Use
  Company Number: US-ROCHE-1967078

PATIENT
  Age: 68 Year
  Sex: Female
  Weight: 57.66 kg

DRUGS (3)
  1. BACLOFEN. [Concomitant]
     Active Substance: BACLOFEN
     Route: 048
  2. OCREVUS [Suspect]
     Active Substance: OCRELIZUMAB
     Indication: MULTIPLE SCLEROSIS
     Route: 042
     Dates: start: 20170710
  3. BACLOFEN. [Concomitant]
     Active Substance: BACLOFEN
     Dosage: ONLY TWO TIMES
     Route: 048
     Dates: start: 201708, end: 201708

REACTIONS (9)
  - Muscle twitching [Unknown]
  - Muscle spasms [Not Recovered/Not Resolved]
  - Flushing [Recovered/Resolved]
  - Tremor [Unknown]
  - Tremor [Not Recovered/Not Resolved]
  - Urinary tract infection [Not Recovered/Not Resolved]
  - Coccydynia [Not Recovered/Not Resolved]
  - Arthropathy [Recovered/Resolved]
  - Pain in extremity [Not Recovered/Not Resolved]

NARRATIVE: CASE EVENT DATE: 20170710
